FAERS Safety Report 9140680 (Version 1)
Quarter: 2013Q1

REPORT INFORMATION
  Report Type: Spontaneous
  Country: FR (occurrence: FR)
  Receive Date: 20130305
  Receipt Date: 20130305
  Transmission Date: 20140127
  Serious: Yes (Other)
  Sender: FDA-Public Use
  Company Number: FR-009507513-1302FRA013299

PATIENT
  Sex: Male

DRUGS (16)
  1. REBETOL [Suspect]
     Indication: HEPATITIS C
     Dosage: 1 DF, TIW
     Route: 048
     Dates: start: 20120831, end: 20121207
  2. PEGASYS [Suspect]
     Indication: HEPATITIS C
     Dosage: 135 MICROGRAM, QW
     Route: 058
     Dates: start: 20120830, end: 20121207
  3. PREVISCAN [Concomitant]
     Indication: PRODUCT USED FOR UNKNOWN INDICATION
  4. NOVORAPID [Concomitant]
     Indication: PRODUCT USED FOR UNKNOWN INDICATION
  5. LEVOTHYROX [Concomitant]
     Indication: PRODUCT USED FOR UNKNOWN INDICATION
  6. CALCIDIA [Concomitant]
     Indication: PRODUCT USED FOR UNKNOWN INDICATION
  7. LASILIX [Concomitant]
     Indication: PRODUCT USED FOR UNKNOWN INDICATION
  8. NEBILOX [Concomitant]
     Indication: PRODUCT USED FOR UNKNOWN INDICATION
  9. RENAGEL [Concomitant]
     Indication: PRODUCT USED FOR UNKNOWN INDICATION
  10. KAYEXALATE [Concomitant]
     Indication: PRODUCT USED FOR UNKNOWN INDICATION
  11. INEXIUM [Concomitant]
     Indication: PRODUCT USED FOR UNKNOWN INDICATION
  12. SEVIKAR [Concomitant]
     Indication: PRODUCT USED FOR UNKNOWN INDICATION
  13. ARANESP (DARBEPOETIN ALFA) [Concomitant]
     Indication: PRODUCT USED FOR UNKNOWN INDICATION
  14. DEDROGYL [Concomitant]
     Indication: PRODUCT USED FOR UNKNOWN INDICATION
  15. LOPERAMIDE HYDROCHLORIDE [Concomitant]
     Indication: PRODUCT USED FOR UNKNOWN INDICATION
     Dosage: UNK, PRN
  16. ACETAMINOPHEN [Concomitant]
     Indication: HEPATITIS C

REACTIONS (1)
  - Psoriasis [Recovering/Resolving]
